FAERS Safety Report 6400819-1 (Version None)
Quarter: 2009Q4

REPORT INFORMATION
  Report Type: 
  Country: None (occurrence: None)
  Receive Date: 20091009
  Receipt Date: 20091002
  Transmission Date: 20100525
  Serious: Yes (Hospitalization, Other)
  Sender: FDA-Public Use
  Company Number: TPA2009A03051

PATIENT
  Age: 71 Year
  Sex: Female
  Weight: 43.5453 kg

DRUGS (1)
  1. ACTOPLUS MET [Suspect]
     Indication: TYPE 2 DIABETES MELLITUS
     Dosage: 15MG/850MG QAM + AT LUNCH, PER ORAL
     Route: 048
     Dates: end: 20090901

REACTIONS (8)
  - BACK INJURY [None]
  - CORONARY ARTERY OCCLUSION [None]
  - DYSPNOEA [None]
  - FALL [None]
  - FLATULENCE [None]
  - PULMONARY OEDEMA [None]
  - SPINAL FRACTURE [None]
  - WEIGHT DECREASED [None]
